FAERS Safety Report 17334109 (Version 1)
Quarter: 2020Q1

REPORT INFORMATION
  Report Type: Spontaneous
  Country: SE (occurrence: SE)
  Receive Date: 20200128
  Receipt Date: 20200128
  Transmission Date: 20200409
  Serious: Yes (Hospitalization, Disabling)
  Sender: FDA-Public Use
  Company Number: SE-TEVA-2020-SE-1173824

PATIENT
  Age: 14 Year
  Sex: Female

DRUGS (1)
  1. TRAMADOL. [Suspect]
     Active Substance: TRAMADOL
     Route: 065

REACTIONS (1)
  - Cerebellar infarction [Recovered/Resolved with Sequelae]

NARRATIVE: CASE EVENT DATE: 20191006
